FAERS Safety Report 5289231-9 (Version None)
Quarter: 2007Q1

REPORT INFORMATION
  Report Type: 
  Country: None (occurrence: None)
  Receive Date: 20070126
  Receipt Date: 20061206
  Transmission Date: 20070707
  Serious: Yes (Hospitalization)
  Sender: FDA-Public Use
  Company Number: 05P-163-0318733-00

PATIENT
  Age: 40 Year
  Sex: Female
  Weight: 81.1939 kg

DRUGS (1)
  1. OMNICEF [Suspect]
     Indication: ABSCESS
     Dosage: 300 MG, 2 IN 1 D, PER ORAL
     Route: 048
     Dates: start: 20051120, end: 20051130

REACTIONS (2)
  - CLOSTRIDIUM DIFFICILE COLITIS [None]
  - WEIGHT DECREASED [None]
